FAERS Safety Report 23493508 (Version 1)
Quarter: 2024Q1

REPORT INFORMATION
  Report Type: Spontaneous
  Country: US (occurrence: None)
  Receive Date: 20240206
  Receipt Date: 20240206
  Transmission Date: 20240410
  Serious: Yes (Death)
  Sender: FDA-Public Use
  Company Number: None

PATIENT
  Sex: Female

DRUGS (4)
  1. NIVESTYM [Suspect]
     Active Substance: FILGRASTIM-AAFI
     Indication: Pulmonary arterial hypertension
     Dosage: 300MCG/.5M  CONTINUOUS SC?
     Route: 058
     Dates: start: 202312
  2. MYCOPHENOLIC ACID [Concomitant]
     Active Substance: MYCOPHENOLIC ACID
  3. SIROLIMUS [Concomitant]
     Active Substance: SIROLIMUS
  4. C-TACROLIMUS [Concomitant]

REACTIONS (1)
  - Death [None]
